FAERS Safety Report 8562426-4 (Version None)
Quarter: 2012Q3

REPORT INFORMATION
  Report Type: 
  Country: None (occurrence: None)
  Receive Date: 20120802
  Receipt Date: 20120706
  Transmission Date: 20120928
  Serious: No
  Sender: FDA-Public Use
  Company Number: US-AMGEN-USASP2011048806

PATIENT
  Age: 72 Year
  Sex: Female
  Weight: 65.7 kg

DRUGS (2)
  1. ENBREL [Suspect]
     Indication: RHEUMATOID ARTHRITIS
     Dosage: 50 MG, QWK
     Dates: start: 20110912
  2. IMURAN [Concomitant]
     Dosage: 50 MG, BID
     Dates: start: 20010101

REACTIONS (4)
  - HEADACHE [None]
  - INJECTION SITE PAIN [None]
  - EYE IRRITATION [None]
  - RASH [None]
